FAERS Safety Report 10075736 (Version 2)
Quarter: 2014Q2

REPORT INFORMATION
  Report Type: Spontaneous
  Country: US (occurrence: US)
  Receive Date: 20140414
  Receipt Date: 20140523
  Transmission Date: 20141212
  Serious: No
  Sender: FDA-Public Use
  Company Number: US-TEVA-475138USA

PATIENT
  Age: 17 Year
  Sex: Female

DRUGS (1)
  1. CLARAVIS [Suspect]
     Route: 048
     Dates: start: 20130829, end: 20140123

REACTIONS (2)
  - Back pain [Recovered/Resolved]
  - Arthralgia [Recovered/Resolved]
